FAERS Safety Report 6943263-0 (Version None)
Quarter: 2010Q3

REPORT INFORMATION
  Report Type: 
  Country: None (occurrence: None)
  Receive Date: 20100826
  Receipt Date: 20100819
  Transmission Date: 20110219
  Serious: Yes (Hospitalization)
  Sender: FDA-Public Use
  Company Number: CA-JNJFOC-20100807069

PATIENT
  Sex: Male
  Weight: 105 kg

DRUGS (4)
  1. REMICADE [Suspect]
     Indication: COLITIS ULCERATIVE
     Dosage: WK 0
     Route: 042
  2. MESALAMINE [Concomitant]
  3. PREDNISONE [Concomitant]
  4. HEPARIN [Concomitant]

REACTIONS (5)
  - ARTHRALGIA [None]
  - EAR PAIN [None]
  - OROPHARYNGEAL PAIN [None]
  - PAIN IN JAW [None]
  - PYREXIA [None]
